FAERS Safety Report 6663510-2 (Version None)
Quarter: 2010Q2

REPORT INFORMATION
  Report Type: 
  Country: None (occurrence: None)
  Receive Date: 20100401
  Receipt Date: 20100330
  Transmission Date: 20101027
  Serious: Yes (Hospitalization)
  Sender: FDA-Public Use
  Company Number: JP-BAYER-201011460BYL

PATIENT
  Age: 79 Year
  Sex: Male
  Weight: 58 kg

DRUGS (14)
  1. NEXAVAR [Suspect]
     Indication: HEPATIC NEOPLASM MALIGNANT
     Dosage: TOTAL DAILY DOSE: 800 MG  UNIT DOSE: 200 MG
     Route: 048
     Dates: start: 20100303, end: 20100303
  2. NEXAVAR [Suspect]
     Dosage: TOTAL DAILY DOSE: 800 MG  UNIT DOSE: 200 MG
     Route: 048
     Dates: start: 20100305, end: 20100323
  3. ADALAT [Concomitant]
     Route: 048
     Dates: start: 20060726
  4. GLYCYRON [Concomitant]
     Route: 048
     Dates: start: 20080320
  5. URSO 250 [Concomitant]
     Route: 048
     Dates: start: 20050519
  6. ALLELOCK [Concomitant]
     Route: 048
     Dates: start: 20030101
  7. PANVITAN [Concomitant]
     Route: 048
     Dates: start: 20100316, end: 20100318
  8. METHADERM [Concomitant]
     Route: 061
     Dates: start: 20030101
  9. ANTEBATE:OINTMENT [Concomitant]
     Route: 061
     Dates: start: 20100301
  10. UREPEARL L [Concomitant]
     Route: 061
     Dates: start: 20100301
  11. BONALFA HIGH [Concomitant]
     Route: 061
     Dates: start: 20030101
  12. LOPEMIN [Concomitant]
     Route: 048
     Dates: start: 20100323
  13. ALLEGRA [Concomitant]
     Route: 048
     Dates: start: 20091207, end: 20091217
  14. BIOFERMIN [Concomitant]
     Route: 048
     Dates: start: 20100210, end: 20100213

REACTIONS (4)
  - AMMONIA INCREASED [None]
  - HEPATIC FUNCTION ABNORMAL [None]
  - PYREXIA [None]
  - VOMITING [None]
